FAERS Safety Report 6523705-5 (Version None)
Quarter: 2009Q4

REPORT INFORMATION
  Report Type: 
  Country: None (occurrence: None)
  Receive Date: 20091222
  Receipt Date: 20091210
  Transmission Date: 20100525
  Serious: Yes (Hospitalization, Other)
  Sender: FDA-Public Use
  Company Number: POMP-1000761

PATIENT
  Age: 22 Year
  Sex: Male

DRUGS (1)
  1. MYOZYME [Suspect]
     Indication: GLYCOGEN STORAGE DISEASE TYPE II
     Dosage: 20 MG/KG, Q2W,
     Dates: start: 20060822

REACTIONS (10)
  - BLOOD CREATINE PHOSPHOKINASE ABNORMAL [None]
  - CARDIAC FAILURE [None]
  - CHRONIC HEPATITIS [None]
  - DEHYDRATION [None]
  - GASTROENTERITIS [None]
  - OEDEMA PERIPHERAL [None]
  - PERICARDIAL EFFUSION [None]
  - PYREXIA [None]
  - RESPIRATORY DISTRESS [None]
  - SUPRAVENTRICULAR TACHYCARDIA [None]
